FAERS Safety Report 7582780-X (Version None)
Quarter: 2011Q2

REPORT INFORMATION
  Report Type: 
  Country: None (occurrence: None)
  Receive Date: 20110630
  Receipt Date: 20110627
  Transmission Date: 20111010
  Serious: Yes (Hospitalization)
  Sender: FDA-Public Use
  Company Number: FR-PFIZER INC-2011141838

PATIENT
  Age: 85 Year
  Sex: Female

DRUGS (10)
  1. DURAGESIC-100 [Concomitant]
     Dosage: 25 MG, EVERY 3 DAYS
  2. CORDARONE [Concomitant]
     Dosage: 200 MG, 1X/DAY
  3. COUMADIN [Concomitant]
     Dosage: 1 MG, 1X/DAY
  4. CRESTOR [Concomitant]
     Dosage: 10 MG, 1X/DAY
  5. OMEPRAZOLE [Concomitant]
     Dosage: 20 MG, 1X/DAY
  6. CLINDAMYCIN HCL [Suspect]
     Indication: BURSITIS INFECTIVE
     Dosage: 300 MG, 3X/DAY
     Route: 048
     Dates: start: 20110331, end: 20110404
  7. LYRICA [Concomitant]
     Dosage: 25 MG, 1X/DAY
  8. OROCAL [Concomitant]
  9. NEBIVOLOL [Concomitant]
     Dosage: 50 MG, 1 DF IN THE MORNING AND HALF  DF IN THE EVENING
  10. RAMIPRIL [Concomitant]
     Dosage: 1.25 MG, 1X/DAY

REACTIONS (2)
  - CYTOLYTIC HEPATITIS [None]
  - CHOLESTASIS [None]
